FAERS Safety Report 22594854 (Version 1)
Quarter: 2023Q2

REPORT INFORMATION
  Report Type: Spontaneous
  Country: US (occurrence: US)
  Receive Date: 20230613
  Receipt Date: 20230613
  Transmission Date: 20230722
  Serious: Yes (Other)
  Sender: FDA-Public Use
  Company Number: US-MYLANLABS-2023M1059562

PATIENT
  Sex: Female

DRUGS (1)
  1. SOMA [Suspect]
     Active Substance: CARISOPRODOL
     Indication: Systemic mastocytosis
     Dosage: 200 MILLIGRAM, QD
     Route: 065
     Dates: start: 20230202

REACTIONS (12)
  - Retinal haemorrhage [Unknown]
  - Eye haemorrhage [Unknown]
  - Cataract [Unknown]
  - Pain in extremity [Unknown]
  - Back pain [Unknown]
  - Bone disorder [Unknown]
  - Somnolence [Unknown]
  - Pain [Unknown]
  - Vision blurred [Unknown]
  - Swelling of eyelid [Unknown]
  - Lacrimation increased [Unknown]
  - Gait disturbance [Unknown]
